FAERS Safety Report 13587994 (Version 2)
Quarter: 2017Q3

REPORT INFORMATION
  Report Type: Report from Study
  Country: IL (occurrence: IL)
  Receive Date: 20170527
  Receipt Date: 20170705
  Transmission Date: 20171127
  Serious: Yes (Hospitalization, Other)
  Sender: FDA-Public Use
  Company Number: IL-AMGEN-ISRSL2017078981

PATIENT
  Age: 75 Year
  Sex: Female
  Weight: 55 kg

DRUGS (8)
  1. VECTOR [Concomitant]
     Dosage: 160 MG, QD
  2. PROLIA [Suspect]
     Active Substance: DENOSUMAB
     Indication: OSTEOPOROSIS POSTMENOPAUSAL
     Dosage: 60 MG, Q6MO
     Route: 058
     Dates: start: 20160926
  3. SIMVASTATIN-TEVA [Concomitant]
     Dosage: 40 MG, QD
     Route: 048
  4. ALPHA D3 [Concomitant]
     Dosage: 0.25 MCG, QD
     Route: 048
  5. LORIVAN [Concomitant]
     Dosage: 1 MG, QD
     Route: 048
  6. AMLOW [Concomitant]
     Dosage: 5 MG, QD
     Route: 048
  7. CO-DIOVAN [Concomitant]
     Active Substance: HYDROCHLOROTHIAZIDE\VALSARTAN
     Dosage: ONE TABLET, QD
     Route: 048
  8. NORMITEN [Concomitant]
     Active Substance: ATENOLOL
     Dosage: 50 MG, QD
     Route: 048

REACTIONS (6)
  - Nausea [Unknown]
  - Diarrhoea [Recovered/Resolved]
  - Vomiting [Unknown]
  - Abdominal pain [Recovered/Resolved]
  - Cardiomegaly [Unknown]
  - Liver abscess [Recovered/Resolved]

NARRATIVE: CASE EVENT DATE: 2016
